FAERS Safety Report 9531683 (Version 1)
Quarter: 2013Q3

REPORT INFORMATION
  Report Type: Spontaneous
  Country: US (occurrence: None)
  Receive Date: 20130917
  Receipt Date: 20130917
  Transmission Date: 20140515
  Serious: Yes (Hospitalization)
  Sender: FDA-Public Use
  Company Number: None

PATIENT
  Age: 31 Year
  Sex: Male
  Weight: 84.9 kg

DRUGS (3)
  1. DIPRIVAN [Suspect]
     Indication: ANALGESIC THERAPY
     Dosage: 50 MCG/KG/MIN
     Route: 042
     Dates: start: 20130828, end: 20130828
  2. OXYGEN [Concomitant]
  3. LACTATED RINGERS [Concomitant]

REACTIONS (4)
  - Lip swelling [None]
  - Rash macular [None]
  - Drug hypersensitivity [None]
  - Infusion related reaction [None]
